FAERS Safety Report 7905795-8 (Version None)
Quarter: 2011Q4

REPORT INFORMATION
  Report Type: 
  Country: None (occurrence: None)
  Receive Date: 20111108
  Receipt Date: 20111101
  Transmission Date: 20120403
  Serious: Yes (Hospitalization, Other)
  Sender: FDA-Public Use
  Company Number: ACO_27318_2011

PATIENT
  Age: 40 Year
  Sex: Male

DRUGS (5)
  1. CYMBALTA [Concomitant]
  2. XANAX [Suspect]
  3. TYSABRI [Concomitant]
  4. AMBIEN [Concomitant]
  5. AMPYRA [Suspect]
     Indication: GAIT DISTURBANCE
     Dosage: 10 MG, BID
     Dates: start: 20101224, end: 20111015

REACTIONS (5)
  - RENAL FAILURE [None]
  - MULTIPLE SCLEROSIS RELAPSE [None]
  - HYPOXIA [None]
  - CONVULSION [None]
  - DIALYSIS [None]
